FAERS Safety Report 7283535-6 (Version None)
Quarter: 2011Q1

REPORT INFORMATION
  Report Type: 
  Country: None (occurrence: None)
  Receive Date: 20110126
  Receipt Date: 20110110
  Transmission Date: 20110831
  Serious: Yes (Death)
  Sender: FDA-Public Use
  Company Number: 025511

PATIENT
  Age: 55 Year
  Sex: Female

DRUGS (7)
  1. ZOLPIDEM [Suspect]
  2. RISPERDONE [Suspect]
  3. ALPRAZOLAM [Suspect]
     Dosage: (ORAL)
     Route: 048
  4. OLANZAPINE [Suspect]
  5. LITHIUM [Suspect]
  6. AMITRIPTYLINE [Suspect]
  7. MIRTAZAPINE [Suspect]

REACTIONS (1)
  - COMPLETED SUICIDE [None]
